FAERS Safety Report 11021603 (Version 2)
Quarter: 2015Q2

REPORT INFORMATION
  Report Type: Report from Study
  Country: US (occurrence: US)
  Receive Date: 20150413
  Receipt Date: 20150415
  Transmission Date: 20150821
  Serious: Yes (Other)
  Sender: FDA-Public Use
  Company Number: US-ABBVIE-15K-163-1359322-00

PATIENT
  Age: 64 Year
  Sex: Male

DRUGS (7)
  1. TYLENOL [Concomitant]
     Active Substance: ACETAMINOPHEN
     Indication: HEADACHE
  2. HUMIRA [Suspect]
     Active Substance: ADALIMUMAB
     Indication: CROHN^S DISEASE
     Route: 065
     Dates: start: 201412, end: 201502
  3. WORMWOOD [Suspect]
     Active Substance: ARTEMISIA ABSINTHIUM POLLEN
     Indication: PRODUCT USED FOR UNKNOWN INDICATION
     Route: 065
     Dates: start: 2015, end: 2015
  4. CRESTOR [Concomitant]
     Active Substance: ROSUVASTATIN CALCIUM
     Indication: BLOOD CHOLESTEROL INCREASED
     Dosage: ABOUT ONCE WEEKLY
  5. TYLENOL [Concomitant]
     Active Substance: ACETAMINOPHEN
     Indication: PAIN
     Dosage: 2-3 TIMES WEEKLY
  6. BISMUTH CITRATE [Suspect]
     Active Substance: BISMUTH CITRATE
     Indication: PRODUCT USED FOR UNKNOWN INDICATION
     Route: 065
  7. COZAAR [Concomitant]
     Active Substance: LOSARTAN POTASSIUM
     Indication: HYPERTENSION
     Dosage: 1-2 TIMES WEEKLY

REACTIONS (8)
  - Muscle twitching [Recovering/Resolving]
  - Crohn^s disease [Not Recovered/Not Resolved]
  - Speech disorder [Recovering/Resolving]
  - Burning sensation [Unknown]
  - Clumsiness [Recovering/Resolving]
  - Dyskinesia [Not Recovered/Not Resolved]
  - Dysgraphia [Recovering/Resolving]
  - CSF protein increased [Unknown]

NARRATIVE: CASE EVENT DATE: 2015
